FAERS Safety Report 9453938 (Version 2)
Quarter: 2013Q3

REPORT INFORMATION
  Report Type: Spontaneous
  Country: JP (occurrence: JP)
  Receive Date: 20130812
  Receipt Date: 20130827
  Transmission Date: 20140515
  Serious: Yes (Other)
  Sender: FDA-Public Use
  Company Number: JP-PFIZER INC-2013230575

PATIENT
  Age: 4 Decade
  Sex: Female

DRUGS (10)
  1. SOLANAX [Suspect]
     Dosage: 2.4 MG, UNK
     Route: 048
  2. SOLANAX [Suspect]
     Dosage: 0.4 MG, UNK
     Route: 048
  3. PAROXETINE HYDROCHLORIDE [Suspect]
     Dosage: 10 MG, UNK
     Route: 048
  4. FLUVOXAMINE MALEATE [Suspect]
     Dosage: 75 MG, UNK
     Route: 048
  5. DESYREL [Suspect]
     Dosage: 25 MG, UNK
     Route: 048
  6. BROMAZEPAM [Suspect]
     Dosage: 12 MG, UNK
     Route: 048
  7. ETIZOLAM [Suspect]
     Dosage: 3.5 MG, UNK
     Route: 048
  8. BROTIZOLAM [Suspect]
     Dosage: 0.25 MG, UNK
     Route: 048
  9. FAMOTIDINE [Suspect]
     Dosage: 40 MG, UNK
     Route: 048
  10. TEPRENONE [Suspect]
     Dosage: 150 MG, UNK
     Route: 048

REACTIONS (5)
  - Suicidal ideation [Recovered/Resolved]
  - Altered state of consciousness [Recovered/Resolved]
  - Hypotonia [Recovered/Resolved]
  - Disinhibition [Recovered/Resolved]
  - Condition aggravated [Recovered/Resolved]
